FAERS Safety Report 4431454-2 (Version None)
Quarter: 2004Q3

REPORT INFORMATION
  Report Type: 
  Country: None (occurrence: None)
  Receive Date: 20040824
  Receipt Date: 20040817
  Transmission Date: 20050211
  Serious: Yes (Other)
  Sender: FDA-Public Use
  Company Number: US-BRISTOL-MYERS SQUIBB COMPANY-12675617

PATIENT
  Age: 39 Year
  Sex: Male

DRUGS (8)
  1. EFAVIRENZ [Suspect]
  2. RIFABUTIN [Suspect]
     Dosage: INCREASED TO 1350 MG DAILY; THEN DECREASED.
  3. TENOFOVIR [Concomitant]
  4. LAMIVUDINE [Concomitant]
  5. ISONIAZID [Concomitant]
     Dosage: INCREASED TO 750 MG DAILY
  6. ETHAMBUTOL HCL [Concomitant]
     Dosage: DECREASED TO 900 MG DAILY
  7. PYRAZINAMIDE [Concomitant]
  8. PREDNISONE [Concomitant]
     Dosage: TAPERED AND THEN 15/10 MG DAILY THEN 10 MG DAILY AND TAPERED OFF

REACTIONS (4)
  - DRUG INTERACTION [None]
  - DRUG LEVEL BELOW THERAPEUTIC [None]
  - IRITIS [None]
  - LYMPH NODE TUBERCULOSIS [None]
